FAERS Safety Report 5803854-7 (Version None)
Quarter: 2008Q3

REPORT INFORMATION
  Report Type: 
  Country: None (occurrence: None)
  Receive Date: 20080708
  Receipt Date: 20080613
  Transmission Date: 20090109
  Serious: No
  Sender: FDA-Public Use
  Company Number: US-BOEHRINGER INGELHEIM GMBH, GERMANY-2008-BP-09273BP

PATIENT
  Age: 37 Year
  Sex: Female

DRUGS (2)
  1. SPIRIVA [Suspect]
     Dates: start: 20080501
  2. PREDNISONE TAB [Concomitant]

REACTIONS (2)
  - OEDEMA PERIPHERAL [None]
  - PAIN [None]
